FAERS Safety Report 21484639 (Version 1)
Quarter: 2022Q4

REPORT INFORMATION
  Report Type: Spontaneous
  Country: FR (occurrence: FR)
  Receive Date: 20221020
  Receipt Date: 20221020
  Transmission Date: 20230113
  Serious: Yes (Other)
  Sender: FDA-Public Use
  Company Number: None

PATIENT
  Age: 41 Year
  Sex: Female
  Weight: 50 kg

DRUGS (7)
  1. AMOXICILLIN [Suspect]
     Active Substance: AMOXICILLIN
     Indication: Atypical mycobacterial infection
     Dosage: UNIT DOSE :  3 GRAM, FREQUENCY TIME : 1 DAY, DURATION : 9 DAYS
     Route: 065
     Dates: start: 20220913, end: 20220922
  2. ATOVAQUONE [Suspect]
     Active Substance: ATOVAQUONE
     Indication: AIDS related complication
     Dosage: UNIT DOSE :   1.5 GRAM, FREQUENCY TIME : 1 DAY ,DURATION : 10 DAYS
     Route: 065
     Dates: start: 20220914, end: 20220924
  3. ACETAMINOPHEN\CODEINE PHOSPHATE [Concomitant]
     Active Substance: ACETAMINOPHEN\CODEINE PHOSPHATE
     Indication: Product used for unknown indication
     Dosage: IF NECESSARY, UNIT DOSE :   1 GRAM, FREQUENCY TIME : 6 HOURS
     Dates: start: 20220919
  4. FOLIC ACID [Concomitant]
     Active Substance: FOLIC ACID
     Indication: Vitamin supplementation
     Dosage: UNIT DOSE :   5 MG, FREQUENCY TIME : 1 DAY
     Dates: start: 20220914
  5. ACETAMINOPHEN [Concomitant]
     Active Substance: ACETAMINOPHEN
     Indication: Pain
     Dosage: IF NECESSARY, UNIT DOSE :   1 GRAM, FREQUENCY TIME : 8  HOURS
     Dates: start: 20220911
  6. VALACYCLOVIR HYDROCHLORIDE [Concomitant]
     Active Substance: VALACYCLOVIR HYDROCHLORIDE
     Indication: Product used for unknown indication
     Dosage: UNIT DOSE : 1  GRAM, FREQUENCY TIME : 1 DAY
     Dates: start: 20220921, end: 20220922
  7. LOVENOX [Concomitant]
     Active Substance: ENOXAPARIN SODIUM
     Indication: Thrombosis prophylaxis
     Dosage: UNIT DOSE : 1 DOSAGE FORM ,  FREQUENCY TIME : 1 DAY
     Dates: start: 20220914

REACTIONS (2)
  - Pruritus [Recovered/Resolved]
  - Rash maculo-papular [Recovered/Resolved]

NARRATIVE: CASE EVENT DATE: 20220921
